FAERS Safety Report 5105069-7 (Version None)
Quarter: 2006Q3

REPORT INFORMATION
  Report Type: 
  Country: None (occurrence: None)
  Receive Date: 20060914
  Receipt Date: 20060809
  Transmission Date: 20061208
  Serious: Yes (Other)
  Sender: FDA-Public Use
  Company Number: JP-GILEAD-2006-0010005

PATIENT
  Sex: Male

DRUGS (9)
  1. HEPSERA [Suspect]
     Indication: HEPATIC CIRRHOSIS
     Route: 048
     Dates: start: 20040219
  2. IOPAMIRON [Suspect]
     Indication: DRUG USE FOR UNKNOWN INDICATION
  3. LAMIVUDINE [Concomitant]
     Dates: start: 20020101
  4. FAMOTIDINE [Concomitant]
     Dates: start: 20020101
  5. FAMOTIDINE [Concomitant]
     Dates: start: 20020101
  6. ATENOLOL [Concomitant]
     Dates: start: 20020101
  7. ATENOLOL [Concomitant]
     Dates: start: 20020101
  8. DIGOXIN [Concomitant]
     Dates: start: 20020101
  9. DIGOXIN [Concomitant]
     Dates: start: 20020101

REACTIONS (2)
  - BLOOD CREATININE INCREASED [None]
  - RENAL IMPAIRMENT [None]
